FAERS Safety Report 8222075-4 (Version None)
Quarter: 2012Q1

REPORT INFORMATION
  Report Type: 
  Country: None (occurrence: None)
  Receive Date: 20120320
  Receipt Date: 20120315
  Transmission Date: 20120608
  Serious: Yes (Other)
  Sender: FDA-Public Use
  Company Number: BR-ABBOTT-11P-020-0848973-00

PATIENT
  Age: 76 Year
  Sex: Female
  Weight: 90 kg

DRUGS (11)
  1. LEVOTHYROXINE SODIUM [Suspect]
     Indication: HYPOTHYROIDISM
  2. CIPROFLOXACIN [Concomitant]
     Indication: PRODUCT USED FOR UNKNOWN INDICATION
  3. MEROPENEM [Concomitant]
     Indication: PRODUCT USED FOR UNKNOWN INDICATION
  4. LEVOTHYROXINE SODIUM [Suspect]
  5. ANTIBIOTIC [Concomitant]
     Indication: PRODUCT USED FOR UNKNOWN INDICATION
  6. ERTAPENEM [Concomitant]
     Indication: PRODUCT USED FOR UNKNOWN INDICATION
     Route: 030
  7. NORADRENALIN [Concomitant]
     Indication: PRODUCT USED FOR UNKNOWN INDICATION
  8. INSULIN GLARGINE [Concomitant]
     Indication: PRODUCT USED FOR UNKNOWN INDICATION
     Dates: end: 20080301
  9. VALSARTAN [Concomitant]
     Indication: PRODUCT USED FOR UNKNOWN INDICATION
     Dosage: 80 MG DAILY
  10. BROMOPRIDE [Concomitant]
     Indication: VOMITING
     Dosage: BEFORE EATING, WHEN NEEDED
  11. PANTOPRAZOLE [Suspect]
     Indication: PRODUCT USED FOR UNKNOWN INDICATION
     Dosage: 20 MG DAILY

REACTIONS (3)
  - HYPOTHYROIDISM [None]
  - MALABSORPTION [None]
  - PLEURAL EFFUSION [None]
